FAERS Safety Report 6795483-6 (Version None)
Quarter: 2010Q2

REPORT INFORMATION
  Report Type: 
  Country: None (occurrence: None)
  Receive Date: 20100625
  Receipt Date: 20100611
  Transmission Date: 20101027
  Serious: Yes (Hospitalization, Other)
  Sender: FDA-Public Use
  Company Number: PHHY2008CA00568

PATIENT
  Sex: Female

DRUGS (7)
  1. CLOZARIL [Suspect]
     Indication: AGITATION
     Dosage: 200 MG
     Route: 048
  2. CLOZARIL [Suspect]
     Dosage: 250 MG, QHS
     Route: 048
     Dates: start: 20061016, end: 20080121
  3. CLOZARIL [Suspect]
     Dosage: 200 MG, QHS
     Route: 048
     Dates: start: 20080121, end: 20080128
  4. PANTOPRAZOLE [Concomitant]
  5. PREVACID [Concomitant]
  6. LAMICTAL [Concomitant]
     Dosage: 50 MG, BID
     Dates: start: 20071220, end: 20080108
  7. EPIVAL [Concomitant]

REACTIONS (9)
  - AGITATION [None]
  - BLISTER [None]
  - CONVULSION [None]
  - ERYTHEMA [None]
  - PETIT MAL EPILEPSY [None]
  - RASH [None]
  - SEDATION [None]
  - SKIN LESION [None]
  - WOUND [None]
